FAERS Safety Report 14963742 (Version 1)
Quarter: 2018Q2

REPORT INFORMATION
  Report Type: Spontaneous
  Country: US (occurrence: US)
  Receive Date: 20180510
  Receipt Date: 20180510
  Transmission Date: 20180711
  Serious: Yes (Hospitalization)
  Sender: FDA-Public Use
  Company Number: None

PATIENT
  Age: 90 Year
  Sex: Male
  Weight: 83 kg

DRUGS (10)
  1. DOCUSATE 250 MG BID [Concomitant]
     Dates: start: 20170401
  2. ALLOPURINAL-300 MG QD [Concomitant]
     Dates: start: 20170201, end: 20170814
  3. ALBUTEROL 1 PUFF PRN [Concomitant]
     Dates: start: 20090101
  4. RUXOLITINIB [Suspect]
     Active Substance: RUXOLITINIB
     Indication: CHRONIC MYELOID LEUKAEMIA
     Route: 048
     Dates: start: 20171120
  5. SENNA 2 TBL BID [Concomitant]
     Dates: start: 20170401
  6. AZITHROMYCIN ANHYDROUS. [Concomitant]
     Active Substance: AZITHROMYCIN ANHYDROUS
     Dates: start: 20180208, end: 20180212
  7. TESTERONE 80 MG [Concomitant]
     Dates: start: 20101001
  8. DORZOLEMIDE 1 DROP QD [Concomitant]
     Dates: start: 20180401
  9. LANTANOPROST 1DROP QD [Concomitant]
     Dates: start: 20170401
  10. TAMIFLU [Concomitant]
     Active Substance: OSELTAMIVIR PHOSPHATE
     Dates: start: 20180208, end: 20180212

REACTIONS (1)
  - Pneumonia [None]

NARRATIVE: CASE EVENT DATE: 20180304
